FAERS Safety Report 8519000-5 (Version None)
Quarter: 2012Q3

REPORT INFORMATION
  Report Type: 
  Country: None (occurrence: None)
  Receive Date: 20120718
  Receipt Date: 20120709
  Transmission Date: 20120928
  Serious: Yes (Death, Hospitalization)
  Sender: FDA-Public Use
  Company Number: TW-ACTELION-A-CH2012-68286

PATIENT
  Sex: Female

DRUGS (3)
  1. TRACLEER [Suspect]
     Dosage: 62.5 MG, BID
     Route: 048
  2. TRACLEER [Suspect]
     Indication: PULMONARY ARTERIAL HYPERTENSION
     Dosage: 125 MG, BID
     Route: 048
     Dates: end: 20120501
  3. TRACLEER [Suspect]
     Dosage: UNK MG, UNK
     Route: 048
     Dates: end: 20120701

REACTIONS (4)
  - PYREXIA [None]
  - CONDITION AGGRAVATED [None]
  - HAEMOPTYSIS [None]
  - PNEUMONIA [None]
